FAERS Safety Report 5699455-4 (Version None)
Quarter: 2008Q2

REPORT INFORMATION
  Report Type: 
  Country: None (occurrence: None)
  Receive Date: 20080407
  Receipt Date: 20080407
  Transmission Date: 20081010
  Serious: No
  Sender: FDA-Public Use
  Company Number: None

PATIENT
  Age: 19 Year
  Sex: Female
  Weight: 56.6996 kg

DRUGS (1)
  1. TRILEPTAL [Suspect]
     Dosage: 2 TAB TWICE DAILY

REACTIONS (1)
  - CONVULSION [None]
